FAERS Safety Report 5534401-5 (Version None)
Quarter: 2007Q4

REPORT INFORMATION
  Report Type: 
  Country: None (occurrence: None)
  Receive Date: 20071205
  Receipt Date: 20071121
  Transmission Date: 20080405
  Serious: Yes (Other)
  Sender: FDA-Public Use
  Company Number: DE-BAYER-DE-2007-040135

PATIENT
  Age: 46 Year
  Sex: Female

DRUGS (1)
  1. MIRENA [Suspect]
     Indication: DRUG USE FOR UNKNOWN INDICATION
     Dosage: TOTAL DAILY DOSE: 20 ?G/D  UNIT DOSE: 20 ?G/D
     Route: 015
     Dates: start: 20070215, end: 20071019

REACTIONS (3)
  - COMPLICATION OF DEVICE REMOVAL [None]
  - DRUG INTOLERANCE [None]
  - MENOPAUSAL SYMPTOMS [None]
